FAERS Safety Report 15925776 (Version 1)
Quarter: 2019Q1

REPORT INFORMATION
  Report Type: Report from Study
  Country: None (occurrence: BE)
  Receive Date: 20190205
  Receipt Date: 20190205
  Transmission Date: 20190417
  Serious: Yes (Death, Hospitalization)
  Sender: FDA-Public Use
  Company Number: BE-ABBVIE-19S-013-2642039-00

PATIENT
  Age: 83 Year
  Sex: Male

DRUGS (12)
  1. MEDROL [Concomitant]
     Active Substance: METHYLPREDNISOLONE
     Indication: PRODUCT USED FOR UNKNOWN INDICATION
  2. LEDERTREXATE [Concomitant]
     Active Substance: METHOTREXATE
     Indication: PRODUCT USED FOR UNKNOWN INDICATION
  3. DUODOPA [Suspect]
     Active Substance: CARBIDOPA\LEVODOPA
     Dosage: DOSES CONTINUOUSLY MONITORED AND ADAPTED
     Route: 050
     Dates: start: 20130923, end: 20181112
  4. PARACETAMOL TEVA [Concomitant]
     Indication: PRODUCT USED FOR UNKNOWN INDICATION
  5. DUODOPA [Suspect]
     Active Substance: CARBIDOPA\LEVODOPA
     Indication: PARKINSON^S DISEASE
     Dosage: DOSAGES UNKNOWN
     Route: 050
     Dates: start: 20130513, end: 20130725
  6. PROLOPA [Concomitant]
     Active Substance: BENSERAZIDE\LEVODOPA
     Indication: PARKINSON^S DISEASE
     Dosage: 200MG/50MG; UNIT DOSE: 1 TABLET 3 TIMES A DAY AND 0.5 TABLET 3 TIMES A DAY
     Route: 048
  7. MEDROL [Concomitant]
     Active Substance: METHYLPREDNISOLONE
  8. FOLAVIT [Concomitant]
     Active Substance: FOLIC ACID
     Indication: PRODUCT USED FOR UNKNOWN INDICATION
  9. DUODOPA [Suspect]
     Active Substance: CARBIDOPA\LEVODOPA
     Dosage: MD= 4ML CD= 4ML/HR DURING 16HRS  ED= 1.1ML ND= 4ML/HR DURING 8HRS
     Route: 050
     Dates: start: 20181112
  10. OMEPRAZOLE. [Concomitant]
     Active Substance: OMEPRAZOLE
     Indication: PRODUCT USED FOR UNKNOWN INDICATION
  11. DUODOPA [Suspect]
     Active Substance: CARBIDOPA\LEVODOPA
     Dosage: MD= 4ML CD= 3.7ML/HR DURING 16HRS  ED= 1ML ND= 3.7ML/HR DURING 8HRS
     Route: 050
     Dates: start: 20130725, end: 20130923
  12. PROLOPA [Concomitant]
     Active Substance: BENSERAZIDE\LEVODOPA
     Dosage: FORM STRENGTH: 200MG/50MG; UNIT DOSE: 0.5 TABLET

REACTIONS (6)
  - Fall [Recovered/Resolved]
  - Device issue [Unknown]
  - Stoma site infection [Recovered/Resolved]
  - Insomnia [Unknown]
  - Cerebral haemorrhage [Fatal]
  - Brain injury [Fatal]

NARRATIVE: CASE EVENT DATE: 201901
